FAERS Safety Report 21668824 (Version 1)
Quarter: 2022Q4

REPORT INFORMATION
  Report Type: Spontaneous
  Country: US (occurrence: None)
  Receive Date: 20221130
  Receipt Date: 20221130
  Transmission Date: 20230113
  Serious: Yes (Death)
  Sender: FDA-Public Use
  Company Number: None

PATIENT
  Age: 65 Year
  Sex: Female
  Weight: 74.16 kg

DRUGS (17)
  1. PACLITAXEL [Suspect]
     Active Substance: PACLITAXEL
  2. NEULASTA [Suspect]
     Active Substance: PEGFILGRASTIM
  3. BENADRYL [Concomitant]
  4. BETAXLOL [Concomitant]
  5. DEXAMETHASONE [Concomitant]
  6. DYLCOLAX RECTAL [Concomitant]
  7. ENSURE/FIBER [Concomitant]
  8. FAMOTIDINE [Concomitant]
  9. FLEET ENEMA [Concomitant]
  10. LISINOPRIL [Concomitant]
  11. LORAZEPAM [Concomitant]
  12. MILK OF MAGNESIA [Concomitant]
  13. MIRALAX [Concomitant]
  14. MORPHINE SULFATE [Concomitant]
  15. OXYCODONE [Concomitant]
  16. VRAYLAR [Concomitant]
  17. XARELTO [Concomitant]

REACTIONS (1)
  - Death [None]
